FAERS Safety Report 11047086 (Version 2)
Quarter: 2015Q2

REPORT INFORMATION
  Report Type: Spontaneous
  Country: US (occurrence: US)
  Receive Date: 20150420
  Receipt Date: 20150504
  Transmission Date: 20150821
  Serious: No
  Sender: FDA-Public Use
  Company Number: US-009507513-1504USA002953

PATIENT
  Age: 32 Year
  Sex: Male
  Weight: 109.3 kg

DRUGS (3)
  1. DULERA [Suspect]
     Active Substance: FORMOTEROL FUMARATE DIHYDRATE\MOMETASONE FUROATE
     Indication: WHEEZING
     Dosage: 2 PUFF 2+/9
     Route: 055
     Dates: end: 2014
  2. DULERA [Suspect]
     Active Substance: FORMOTEROL FUMARATE DIHYDRATE\MOMETASONE FUROATE
     Indication: BRONCHITIS
     Dosage: 2 PUFF 2+/9
     Route: 055
  3. DULERA [Suspect]
     Active Substance: FORMOTEROL FUMARATE DIHYDRATE\MOMETASONE FUROATE
     Indication: COUGH
     Dosage: 2 PUFF 2+/9
     Route: 055

REACTIONS (11)
  - Oral herpes [Not Recovered/Not Resolved]
  - Upper respiratory tract infection [Unknown]
  - Tongue disorder [Not Recovered/Not Resolved]
  - Chills [Not Recovered/Not Resolved]
  - Nasal congestion [Unknown]
  - Hypersensitivity [Unknown]
  - Hyperlipidaemia [Unknown]
  - Rhonchi [Unknown]
  - Hyperhidrosis [Not Recovered/Not Resolved]
  - Nasopharyngitis [Unknown]
  - Productive cough [Unknown]

NARRATIVE: CASE EVENT DATE: 20140603
